FAERS Safety Report 16353641 (Version 2)
Quarter: 2020Q1

REPORT INFORMATION
  Report Type: Spontaneous
  Country: US (occurrence: US)
  Receive Date: 20190524
  Receipt Date: 20200106
  Transmission Date: 20200409
  Serious: Yes (Death, Other)
  Sender: FDA-Public Use
  Company Number: US-ABBVIE-19K-163-2795004-00

PATIENT
  Age: 85 Year
  Sex: Male
  Weight: 83.7 kg

DRUGS (5)
  1. LEVOFLOXACIN. [Concomitant]
     Active Substance: LEVOFLOXACIN
     Indication: PYREXIA
     Route: 048
     Dates: start: 20190323
  2. AZACITIDINE. [Concomitant]
     Active Substance: AZACITIDINE
     Indication: ACUTE MYELOID LEUKAEMIA
     Route: 058
     Dates: start: 20190325, end: 20190325
  3. VENCLEXTA [Suspect]
     Active Substance: VENETOCLAX
     Indication: ACUTE MYELOID LEUKAEMIA
     Route: 048
     Dates: start: 20190325, end: 20190325
  4. HYDREA [Concomitant]
     Active Substance: HYDROXYUREA
     Indication: CYTOREDUCTIVE SURGERY
     Route: 048
     Dates: start: 20190319, end: 20190325
  5. ALLOPURINOL. [Concomitant]
     Active Substance: ALLOPURINOL
     Indication: BLOOD URIC ACID
     Route: 046
     Dates: start: 20190319, end: 20190325

REACTIONS (10)
  - Differential white blood cell count abnormal [Unknown]
  - Blood potassium abnormal [Unknown]
  - White blood cell disorder [Unknown]
  - Cardiac arrest [Fatal]
  - Blood creatinine abnormal [Unknown]
  - Bradycardia [Unknown]
  - Hypernatraemia [Unknown]
  - Tumour lysis syndrome [Fatal]
  - Syncope [Unknown]
  - Hyperkalaemia [Unknown]

NARRATIVE: CASE EVENT DATE: 20190325
